FAERS Safety Report 4757959-2 (Version None)
Quarter: 2005Q3

REPORT INFORMATION
  Report Type: 
  Country: None (occurrence: None)
  Receive Date: 20050830
  Receipt Date: 20050822
  Transmission Date: 20060218
  Serious: Yes (Other)
  Sender: FDA-Public Use
  Company Number: 2005095673

PATIENT
  Age: 72 Year
  Sex: Male
  Weight: 90.7194 kg

DRUGS (5)
  1. LIPITOR [Suspect]
     Indication: BLOOD CHOLESTEROL INCREASED
     Dosage: 80 MG (80 MG, 1 IN 1 D), ORAL
     Route: 048
  2. ZETIA [Concomitant]
  3. ZESTRIL [Concomitant]
  4. WARFARIN SODIUM [Concomitant]
  5. PROSCAR [Concomitant]

REACTIONS (5)
  - AORTIC VALVE INCOMPETENCE [None]
  - MITRAL VALVE INCOMPETENCE [None]
  - SURGICAL PROCEDURE REPEATED [None]
  - TRICUSPID VALVE INCOMPETENCE [None]
  - VASCULAR BYPASS DYSFUNCTION [None]
